FAERS Safety Report 18502805 (Version 3)
Quarter: 2021Q2

REPORT INFORMATION
  Report Type: Spontaneous
  Country: US (occurrence: US)
  Receive Date: 20201113
  Receipt Date: 20210617
  Transmission Date: 20210717
  Serious: Yes (Hospitalization, Disabling, Other)
  Sender: FDA-Public Use
  Company Number: US-PURDUE-USA-2020-0166380

PATIENT
  Age: 47 Year
  Sex: Male

DRUGS (17)
  1. OXYCODONE HCL CR TABLETS (SIMILAR TO NDA 22?272) [Suspect]
     Active Substance: OXYCODONE HYDROCHLORIDE
     Indication: BACK PAIN
     Dosage: UNK
     Route: 048
  2. OXYCODONE HCL TABLETS (RHODES 91?490) [Suspect]
     Active Substance: OXYCODONE HYDROCHLORIDE
     Indication: BACK PAIN
     Dosage: UNK
     Route: 048
  3. TRAMADOL CR TABLETS (RHODES 21?745) [Suspect]
     Active Substance: TRAMADOL
     Indication: BACK PAIN
     Dosage: UNK
     Route: 048
  4. MARIJUANA [Suspect]
     Active Substance: CANNABIS SATIVA SUBSP. INDICA TOP
     Indication: PRODUCT USED FOR UNKNOWN INDICATION
     Dosage: UNK
     Route: 065
  5. KLONOPIN [Concomitant]
     Active Substance: CLONAZEPAM
     Indication: PRODUCT USED FOR UNKNOWN INDICATION
     Dosage: UNK
     Route: 065
  6. ALCOHOL. [Suspect]
     Active Substance: ALCOHOL
     Indication: PRODUCT USED FOR UNKNOWN INDICATION
     Dosage: UNK
     Route: 065
  7. ZOLOFT [Concomitant]
     Active Substance: SERTRALINE HYDROCHLORIDE
     Indication: PRODUCT USED FOR UNKNOWN INDICATION
     Dosage: 100 MG, UNK
     Route: 065
  8. ZOLOFT [Concomitant]
     Active Substance: SERTRALINE HYDROCHLORIDE
     Dosage: 50 MG, UNK
     Route: 065
  9. OXYCODONE HYDROCHLORIDE (SIMILAR TO NDA 22?272) [Suspect]
     Active Substance: OXYCODONE HYDROCHLORIDE
     Indication: BACK PAIN
     Dosage: 30 MG, UNK
     Route: 048
     Dates: start: 20070803
  10. COCAINE [Suspect]
     Active Substance: COCAINE
     Indication: PRODUCT USED FOR UNKNOWN INDICATION
     Dosage: UNK
     Route: 065
  11. BUPRENORPHINE TRANSDERMAL PATCH (SIMILAR TO NDA 21?306) [Suspect]
     Active Substance: BUPRENORPHINE
     Indication: BACK PAIN
     Dosage: UNK
     Route: 048
  12. OXYCODONE/ ACETAMINOPHEN TABLETS [Suspect]
     Active Substance: ACETAMINOPHEN\OXYCODONE HYDROCHLORIDE
     Indication: BACK PAIN
     Dosage: UNK
     Route: 048
  13. OXYCODONE HYDROCHLORIDE (SIMILAR TO NDA 22?272) [Suspect]
     Active Substance: OXYCODONE HYDROCHLORIDE
     Dosage: 30 MG, UNK
     Route: 048
     Dates: start: 2006, end: 2011
  14. HEROIN [Suspect]
     Active Substance: DIAMORPHINE
     Indication: PRODUCT USED FOR UNKNOWN INDICATION
     Dosage: UNK
     Route: 065
  15. ALPRAZOLAM. [Concomitant]
     Active Substance: ALPRAZOLAM
     Indication: PRODUCT USED FOR UNKNOWN INDICATION
     Dosage: 1 MG, UNK
     Route: 065
  16. METHADONE [Suspect]
     Active Substance: METHADONE HYDROCHLORIDE
     Indication: BACK PAIN
     Dosage: 10 MG, UNK
     Route: 048
     Dates: start: 2006, end: 2011
  17. XANAX [Concomitant]
     Active Substance: ALPRAZOLAM
     Indication: PRODUCT USED FOR UNKNOWN INDICATION
     Dosage: UNK
     Route: 065

REACTIONS (29)
  - Nausea [Unknown]
  - Decreased appetite [Unknown]
  - Poor quality sleep [Unknown]
  - Generalised anxiety disorder [Unknown]
  - Detoxification [Unknown]
  - Tremor [Unknown]
  - Foot fracture [Unknown]
  - Bipolar I disorder [Unknown]
  - Hallucinations, mixed [Unknown]
  - Insomnia [Unknown]
  - Overdose [Unknown]
  - Drug abuse [Unknown]
  - Substance abuse [Unknown]
  - Pain [Unknown]
  - Suicidal ideation [Unknown]
  - Drug use disorder [Unknown]
  - Affective disorder [Unknown]
  - Amnesia [Unknown]
  - Impulse-control disorder [Unknown]
  - Drug dependence [Unknown]
  - Visual impairment [Unknown]
  - Facial bones fracture [Unknown]
  - Mental disorder [Unknown]
  - Irritability [Unknown]
  - Alcohol use [Unknown]
  - Depression [Unknown]
  - Decreased interest [Unknown]
  - Accident [Unknown]
  - Nicotine dependence [Unknown]

NARRATIVE: CASE EVENT DATE: 2006
